FAERS Safety Report 5333433-X (Version None)
Quarter: 2007Q2

REPORT INFORMATION
  Report Type: 
  Country: None (occurrence: None)
  Receive Date: 20070522
  Receipt Date: 20070522
  Transmission Date: 20071010
  Serious: Yes (Life-Threatening, Hospitalization, Other)
  Sender: FDA-Public Use
  Company Number: None

PATIENT
  Sex: Male
  Weight: 90.7194 kg

DRUGS (1)
  1. TRIAZOLAM [Suspect]
     Indication: INITIAL INSOMNIA
     Dosage: .25 X 2 DAILY PO  TO PRESENT DAILY DOSE
     Route: 048
     Dates: start: 19910201, end: 20070521

REACTIONS (4)
  - ANXIETY [None]
  - BIPOLAR II DISORDER [None]
  - DEPRESSION [None]
  - SUICIDAL IDEATION [None]
